FAERS Safety Report 24230818 (Version 1)
Quarter: 2024Q3

REPORT INFORMATION
  Report Type: Spontaneous
  Country: DE (occurrence: DE)
  Receive Date: 20240821
  Receipt Date: 20240821
  Transmission Date: 20241017
  Serious: Yes (Other)
  Sender: AUROBINDO
  Company Number: DE-BAYER-2024A109637

PATIENT
  Age: 72 Year
  Sex: Male
  Weight: 100 kg

DRUGS (4)
  1. DOCETAXEL [Suspect]
     Active Substance: DOCETAXEL\DOCETAXEL ANHYDROUS
     Indication: Product used for unknown indication
     Dosage: UNK
     Route: 065
     Dates: start: 20240623
  2. DEXAMETHASONE [Suspect]
     Active Substance: DEXAMETHASONE
     Indication: Product used for unknown indication
     Dosage: UNK
     Route: 065
  3. NUBEQA [Suspect]
     Active Substance: DAROLUTAMIDE
     Indication: Prostate cancer
     Dosage: 1200 MILLIGRAM, ONCE A DAY (600 MG, BID)
     Route: 048
     Dates: start: 20240320, end: 20240626
  4. ONDANSETRON [Concomitant]
     Active Substance: ONDANSETRON
     Indication: Product used for unknown indication
     Dosage: UNK
     Route: 065

REACTIONS (3)
  - Hypersensitivity pneumonitis [Recovered/Resolved]
  - Dyspnoea [Recovered/Resolved]
  - Lung opacity [Recovered/Resolved]

NARRATIVE: CASE EVENT DATE: 20240626
